FAERS Safety Report 5848021-6 (Version None)
Quarter: 2008Q3

REPORT INFORMATION
  Report Type: 
  Country: None (occurrence: None)
  Receive Date: 20080818
  Receipt Date: 20080807
  Transmission Date: 20090109
  Serious: Yes (Hospitalization)
  Sender: FDA-Public Use
  Company Number: US-JNJFOC-20080800330

PATIENT
  Sex: Male
  Weight: 123.83 kg

DRUGS (3)
  1. TOPAMAX [Suspect]
     Indication: CONVULSION
     Route: 048
  2. CARBATROL [Suspect]
     Route: 048
  3. CARBATROL [Suspect]
     Indication: CONVULSION
     Route: 048

REACTIONS (7)
  - CONFUSIONAL STATE [None]
  - DRUG REHABILITATION [None]
  - HALLUCINATION [None]
  - HEADACHE [None]
  - HYPERSENSITIVITY [None]
  - THINKING ABNORMAL [None]
  - WEIGHT DECREASED [None]
